FAERS Safety Report 7869755-8 (Version None)
Quarter: 2011Q4

REPORT INFORMATION
  Report Type: 
  Country: None (occurrence: None)
  Receive Date: 20111028
  Receipt Date: 20110110
  Transmission Date: 20120403
  Serious: No
  Sender: FDA-Public Use
  Company Number: US-AMGEN-USASP2011001589

PATIENT
  Age: 56 Year
  Sex: Female

DRUGS (1)
  1. ENBREL [Suspect]
     Indication: RHEUMATOID ARTHRITIS
     Dosage: 50 MG, QWK
     Dates: start: 19990401, end: 20100831

REACTIONS (7)
  - NASOPHARYNGITIS [None]
  - ERYTHEMA [None]
  - EAR INFECTION [None]
  - MUSCULOSKELETAL STIFFNESS [None]
  - MUSCULOSKELETAL DISCOMFORT [None]
  - LOWER LIMB FRACTURE [None]
  - LOCALISED INFECTION [None]
